FAERS Safety Report 17047301 (Version 2)
Quarter: 2019Q4

REPORT INFORMATION
  Report Type: Report from Study
  Country: IT (occurrence: IT)
  Receive Date: 20191119
  Receipt Date: 20191220
  Transmission Date: 20200122
  Serious: Yes (Hospitalization)
  Sender: FDA-Public Use
  Company Number: IT-ROCHE-2468967

PATIENT
  Age: 70 Year
  Sex: Female

DRUGS (7)
  1. SOLU-MEDROL [Concomitant]
     Active Substance: METHYLPREDNISOLONE SODIUM SUCCINATE
  2. ATEZOLIZUMAB. [Suspect]
     Active Substance: ATEZOLIZUMAB
     Indication: NON-SMALL CELL LUNG CANCER
     Dosage: DATE OF MOST RECENT DOSE OF ATEZOLIZUMAB PRIOR TO SAE ONSET ON 30/OCT/2019 (23 DAYS)
     Route: 042
     Dates: start: 20191008
  3. PANTOPRAZOLE SODIUM SESQUIHYDRATE [Concomitant]
     Active Substance: PANTOPRAZOLE SODIUM
  4. CABOZANTINIB [Suspect]
     Active Substance: CABOZANTINIB
     Indication: NON-SMALL CELL LUNG CANCER
     Dosage: DATE OF MOST RECENT DOSE OF XL184 PRIOR TO SAE ONSET ON 30/OCT/2019 (23 DAYS)
     Route: 048
     Dates: start: 20191008
  5. PREGABALIN. [Concomitant]
     Active Substance: PREGABALIN
  6. DUROGESIC [Concomitant]
     Active Substance: FENTANYL
     Route: 065
  7. SERTRALINE [Concomitant]
     Active Substance: SERTRALINE HYDROCHLORIDE

REACTIONS (2)
  - Bronchospasm [Recovered/Resolved]
  - Flushing [Recovering/Resolving]

NARRATIVE: CASE EVENT DATE: 20191030
